FAERS Safety Report 4964222-3 (Version None)
Quarter: 2006Q1

REPORT INFORMATION
  Report Type: 
  Country: None (occurrence: None)
  Receive Date: 20060331
  Receipt Date: 20060317
  Transmission Date: 20060701
  Serious: Yes (Other)
  Sender: FDA-Public Use
  Company Number: US016814

PATIENT
  Age: 45 Year
  Sex: Male

DRUGS (1)
  1. GABITRIL [Suspect]
     Dosage: 480 MG ONCE ORAL
     Route: 048

REACTIONS (5)
  - AGITATION [None]
  - GRAND MAL CONVULSION [None]
  - OVERDOSE [None]
  - PROCEDURAL COMPLICATION [None]
  - STATUS EPILEPTICUS [None]
